FAERS Safety Report 18098977 (Version 1)
Quarter: 2020Q3

REPORT INFORMATION
  Report Type: Spontaneous
  Country: DE (occurrence: DE)
  Receive Date: 20200731
  Receipt Date: 20200731
  Transmission Date: 20201103
  Serious: Yes (Other)
  Sender: FDA-Public Use
  Company Number: DE-ASTRAZENECA-2020SE94786

PATIENT
  Sex: Female

DRUGS (1)
  1. IMFINZI [Suspect]
     Active Substance: DURVALUMAB
     Indication: OVARIAN CANCER
     Dosage: UNKNOWN
     Route: 042

REACTIONS (5)
  - Urinary tract infection [Unknown]
  - Off label use [Unknown]
  - C-reactive protein increased [Unknown]
  - Pyrexia [Unknown]
  - Chills [Unknown]
